FAERS Safety Report 6821482-1 (Version None)
Quarter: 2010Q3

REPORT INFORMATION
  Report Type: 
  Country: None (occurrence: None)
  Receive Date: 20100707
  Receipt Date: 20081105
  Transmission Date: 20110219
  Serious: No
  Sender: FDA-Public Use
  Company Number: US-PFIZER INC-2008064485

PATIENT
  Age: 52 Year
  Sex: Female
  Weight: 66 kg

DRUGS (2)
  1. SERTRALINE HCL [Suspect]
     Indication: ANXIETY
     Route: 048
     Dates: start: 20080706, end: 20080710
  2. SERTRALINE HCL [Suspect]
     Indication: DEPRESSION

REACTIONS (2)
  - DYSPHONIA [None]
  - THROAT IRRITATION [None]
